FAERS Safety Report 8807767 (Version 2)
Quarter: 2012Q4

REPORT INFORMATION
  Report Type: 
  Country: CA (occurrence: CA)
  Receive Date: 20120925
  Receipt Date: 20121016
  Transmission Date: 20130627
  Serious: Yes (Other)
  Sender: FDA-Public Use
  Company Number: CA-PFIZER INC-2012233626

PATIENT
  Age: 20 Year
  Sex: Male

DRUGS (1)
  1. RELPAX [Suspect]
     Indication: MIGRAINE
     Dosage: 40 mg, UNK
     Dates: start: 201209, end: 201209

REACTIONS (5)
  - West Nile viral infection [Unknown]
  - White blood cell count decreased [Unknown]
  - Drug ineffective [Unknown]
  - Nausea [Recovered/Resolved]
  - Neck pain [Recovered/Resolved]
